FAERS Safety Report 18319205 (Version 1)
Quarter: 2020Q3

REPORT INFORMATION
  Report Type: Spontaneous
  Country: US (occurrence: US)
  Receive Date: 20200928
  Receipt Date: 20200928
  Transmission Date: 20201103
  Serious: Yes (Hospitalization)
  Sender: FDA-Public Use
  Company Number: None

PATIENT
  Age: 18 Year
  Sex: Female

DRUGS (1)
  1. CREON [Suspect]
     Active Substance: PANCRELIPASE AMYLASE\PANCRELIPASE LIPASE\PANCRELIPASE PROTEASE
     Indication: CYSTIC FIBROSIS
     Dosage: ?          OTHER DOSE:SEE EVENT;OTHER FREQUENCY:SEE EVENT;?
     Route: 048
     Dates: start: 201803

REACTIONS (2)
  - Dyspnoea [None]
  - Sputum retention [None]

NARRATIVE: CASE EVENT DATE: 20200915
